FAERS Safety Report 14982808 (Version 2)
Quarter: 2018Q2

REPORT INFORMATION
  Report Type: Report from Study
  Country: TW (occurrence: TW)
  Receive Date: 20180607
  Receipt Date: 20180612
  Transmission Date: 20180711
  Serious: Yes (Hospitalization)
  Sender: FDA-Public Use
  Company Number: TW-ROCHE-2133322

PATIENT
  Sex: Male
  Weight: 69.5 kg

DRUGS (1)
  1. ATEZOLIZUMAB. [Suspect]
     Active Substance: ATEZOLIZUMAB
     Indication: RENAL CELL CARCINOMA
     Dosage: DATE OF MOST RECENT DOSE OF BLINDED?ATEZOLIZUMAB PRIOR TO AE ONSET 22 MAY 2018?START TIME OF MOST RE
     Route: 042
     Dates: start: 20180522

REACTIONS (1)
  - Dysarthria [Not Recovered/Not Resolved]
